FAERS Safety Report 4691996-1 (Version None)
Quarter: 2005Q2

REPORT INFORMATION
  Report Type: 
  Country: None (occurrence: None)
  Receive Date: 20050614
  Receipt Date: 20050607
  Transmission Date: 20051028
  Serious: Yes (Death)
  Sender: FDA-Public Use
  Company Number: 200512378BCC

PATIENT
  Age: 53 Year
  Sex: Male

DRUGS (2)
  1. ASPIRIN [Suspect]
     Indication: CHEST PAIN
     Dosage: 650 MG, ONCE, ORAL
     Route: 048
  2. ASPIRIN [Suspect]
     Indication: MYOCARDIAL INFARCTION
     Dosage: 650 MG, ONCE, ORAL
     Route: 048

REACTIONS (1)
  - DEATH [None]
